FAERS Safety Report 6906275-9 (Version None)
Quarter: 2010Q3

REPORT INFORMATION
  Report Type: 
  Country: None (occurrence: None)
  Receive Date: 20100708
  Receipt Date: 20100430
  Transmission Date: 20110219
  Serious: Yes (Other)
  Sender: FDA-Public Use
  Company Number: 2010054868

PATIENT
  Age: 49 Year
  Sex: Female

DRUGS (12)
  1. CHANTIX [Suspect]
     Indication: SMOKING CESSATION THERAPY
     Dates: start: 20100407, end: 20100101
  2. MILNACIPRAN HYDROCHLORIDE (MILNACIPRAN HYDROCHLORIDE) [Suspect]
     Indication: FIBROMYALGIA
     Dosage: 12.5 MG, 1X/DAY, ORAL; 12.5 MG, 2X/DAY, ORAL; 25 MG, 2X/DAY, ORAL; ORAL
     Route: 048
     Dates: start: 20100407, end: 20100407
  3. MILNACIPRAN HYDROCHLORIDE (MILNACIPRAN HYDROCHLORIDE) [Suspect]
     Indication: FIBROMYALGIA
     Dosage: 12.5 MG, 1X/DAY, ORAL; 12.5 MG, 2X/DAY, ORAL; 25 MG, 2X/DAY, ORAL; ORAL
     Route: 048
     Dates: start: 20100408, end: 20100409
  4. MILNACIPRAN HYDROCHLORIDE (MILNACIPRAN HYDROCHLORIDE) [Suspect]
     Indication: FIBROMYALGIA
     Dosage: 12.5 MG, 1X/DAY, ORAL; 12.5 MG, 2X/DAY, ORAL; 25 MG, 2X/DAY, ORAL; ORAL
     Route: 048
     Dates: start: 20100410, end: 20100410
  5. MILNACIPRAN HYDROCHLORIDE (MILNACIPRAN HYDROCHLORIDE) [Suspect]
     Indication: FIBROMYALGIA
     Dosage: 12.5 MG, 1X/DAY, ORAL; 12.5 MG, 2X/DAY, ORAL; 25 MG, 2X/DAY, ORAL; ORAL
     Route: 048
     Dates: start: 20100410, end: 20100414
  6. REMERON [Concomitant]
  7. ACIPHEX [Concomitant]
  8. ADVAIR DISKUS 100/50 [Concomitant]
  9. NASONEX [Concomitant]
  10. METOPROLOL SUCCINATE [Concomitant]
  11. ESTRADIOL [Concomitant]
  12. XOPENEX [Concomitant]

REACTIONS (4)
  - BLOOD PRESSURE INCREASED [None]
  - NAUSEA [None]
  - TACHYCARDIA [None]
  - VOMITING [None]
